FAERS Safety Report 24465757 (Version 1)
Quarter: 2024Q4

REPORT INFORMATION
  Report Type: Report from Study
  Country: US (occurrence: US)
  Receive Date: 20241018
  Receipt Date: 20241018
  Transmission Date: 20250115
  Serious: No
  Sender: ROCHE
  Company Number: US-ROCHE-3531800

PATIENT
  Age: 73 Year
  Sex: Female
  Weight: 72.57 kg

DRUGS (7)
  1. XOLAIR [Suspect]
     Active Substance: OMALIZUMAB
     Indication: Chronic spontaneous urticaria
     Dosage: IN THE OFFICE - 150MG IN EACH ARM
     Route: 058
     Dates: start: 20220301
  2. XOLAIR [Suspect]
     Active Substance: OMALIZUMAB
     Dosage: IN THE OFFICE - 150MG IN EACH ARM
     Route: 058
  3. ATORVASTATIN [Concomitant]
     Active Substance: ATORVASTATIN
     Indication: Blood cholesterol
     Dosage: TAKE NIGHT
     Route: 048
     Dates: start: 2015
  4. PEPCID [Concomitant]
     Active Substance: FAMOTIDINE
     Indication: Hypersensitivity
     Route: 048
  5. ALLEGRA [Concomitant]
     Active Substance: FEXOFENADINE HYDROCHLORIDE
     Indication: Hypersensitivity
     Dosage: FOR HIVES AND ALLERGIES
     Route: 048
  6. PREDNISONE [Concomitant]
     Active Substance: PREDNISONE
     Indication: Urticaria
     Route: 048
  7. EPIPEN [Concomitant]
     Active Substance: EPINEPHRINE
     Indication: Anaphylactic shock
     Dosage: INJECTION IN HIP
     Route: 058

REACTIONS (2)
  - Influenza [Unknown]
  - Illness [Unknown]
